FAERS Safety Report 15404810 (Version 2)
Quarter: 2018Q3

REPORT INFORMATION
  Report Type: Spontaneous
  Country: GB (occurrence: GB)
  Receive Date: 20180919
  Receipt Date: 20180923
  Transmission Date: 20181010
  Serious: Yes (Other)
  Sender: FDA-Public Use
  Company Number: GB-BEH-2018094898

PATIENT
  Sex: Female
  Weight: 45 kg

DRUGS (2)
  1. BERINERT [Suspect]
     Active Substance: HUMAN C1-ESTERASE INHIBITOR
     Indication: PROPHYLAXIS
     Dosage: 1000 IU, QW; PAST 6?12 MONTHS ON THIS DOSE
     Route: 065
  2. BERINERT [Suspect]
     Active Substance: HUMAN C1-ESTERASE INHIBITOR
     Dosage: UNK
     Route: 065
     Dates: start: 2016

REACTIONS (3)
  - Syncope [Recovered/Resolved]
  - Fear of injection [Unknown]
  - Somatic symptom disorder [Unknown]
